FAERS Safety Report 18252849 (Version 3)
Quarter: 2020Q4

REPORT INFORMATION
  Report Type: Spontaneous
  Country: US (occurrence: US)
  Receive Date: 20200910
  Receipt Date: 20201001
  Transmission Date: 20210113
  Serious: Yes (Other)
  Sender: FDA-Public Use
  Company Number: US-009507513-2009USA003695

PATIENT
  Age: 63 Year
  Sex: Male
  Weight: 73.9 kg

DRUGS (13)
  1. VITAMINS (UNSPECIFIED) [Concomitant]
     Active Substance: VITAMINS
     Dosage: UNK UNK, QD (ONCE DAILY)
  2. GARLIC. [Concomitant]
     Active Substance: GARLIC
  3. CHOLECALCIFEROL [Concomitant]
     Active Substance: CHOLECALCIFEROL
     Dosage: 5000 INTERNATIONAL UNIT, QD
  4. ASPIRIN. [Concomitant]
     Active Substance: ASPIRIN
     Dosage: 325 MILLIGRAM, QD
     Route: 048
  5. BUDESONIDE. [Concomitant]
     Active Substance: BUDESONIDE
  6. LINZESS [Concomitant]
     Active Substance: LINACLOTIDE
     Dosage: 1 PILL, QD
     Route: 048
  7. ASCORBIC ACID. [Concomitant]
     Active Substance: ASCORBIC ACID
     Dosage: UNK, QD
  8. PROSCAR [Suspect]
     Active Substance: FINASTERIDE
     Indication: PROSTATOMEGALY
     Dosage: 5 MILLIGRAM, ONCE DAILY
     Route: 048
     Dates: start: 20200814, end: 20200826
  9. PROSCAR [Suspect]
     Active Substance: FINASTERIDE
     Dosage: UNK
     Route: 048
     Dates: start: 2020
  10. FLOMAX [Suspect]
     Active Substance: TAMSULOSIN HYDROCHLORIDE
     Dosage: UNK
     Dates: start: 20200814, end: 20200826
  11. CENTRUM SILVER [Concomitant]
     Active Substance: MINERALS\VITAMINS
     Dosage: UNK
  12. PROVENTIL [Concomitant]
     Active Substance: ALBUTEROL
     Dosage: 2 PUFFS, FOUR TIMES A DAY AND AS NEEDED
  13. PREDNISONE. [Concomitant]
     Active Substance: PREDNISONE
     Dosage: UNK UNK, QD (MOUTH DAILY)
     Route: 048

REACTIONS (14)
  - Groin pain [Unknown]
  - Visual impairment [Not Recovered/Not Resolved]
  - Hallucination [Not Recovered/Not Resolved]
  - Vision blurred [Not Recovered/Not Resolved]
  - Clumsiness [Not Recovered/Not Resolved]
  - Cystitis noninfective [Unknown]
  - Irritability [Not Recovered/Not Resolved]
  - Confusional state [Not Recovered/Not Resolved]
  - Dysuria [Not Recovered/Not Resolved]
  - Inappropriate schedule of product administration [Unknown]
  - Tinnitus [Not Recovered/Not Resolved]
  - Insomnia [Not Recovered/Not Resolved]
  - Urethritis noninfective [Unknown]
  - Ejaculation failure [Unknown]

NARRATIVE: CASE EVENT DATE: 2020
